FAERS Safety Report 22529484 (Version 1)
Quarter: 2023Q2

REPORT INFORMATION
  Report Type: Spontaneous
  Country: US (occurrence: US)
  Receive Date: 20230607
  Receipt Date: 20230607
  Transmission Date: 20230722
  Serious: Yes (Hospitalization, Other)
  Sender: FDA-Public Use
  Company Number: None

PATIENT
  Age: 26 Year
  Sex: Female

DRUGS (5)
  1. MYCOPHENOLATE MOFETIL [Suspect]
     Active Substance: MYCOPHENOLATE MOFETIL
     Indication: Immunosuppressant drug therapy
     Dosage: 500 MILLIGRAM, BID (EVERY 12 HOUR)
     Route: 065
  2. MYCOPHENOLATE MOFETIL [Suspect]
     Active Substance: MYCOPHENOLATE MOFETIL
     Dosage: UNK (DOSE DECREASED)
     Route: 065
  3. TACROLIMUS [Suspect]
     Active Substance: TACROLIMUS
     Indication: Immunosuppressant drug therapy
     Dosage: 2 MILLIGRAM, BID (EVERY 12 HOUR)
     Route: 065
  4. TACROLIMUS [Suspect]
     Active Substance: TACROLIMUS
     Dosage: 1.5 MILLIGRAM, BID (EVERY 12 HOUR), ADJUSTED DOSE
     Route: 065
  5. TACROLIMUS [Suspect]
     Active Substance: TACROLIMUS
     Dosage: 2 MILLIGRAM, BID (EVERY 12 HOUR), RESUMING DOSE
     Route: 065

REACTIONS (10)
  - Acute kidney injury [Recovered/Resolved]
  - Electrolyte imbalance [Recovered/Resolved]
  - Malabsorption [Recovered/Resolved]
  - Renal tubular necrosis [Recovered/Resolved]
  - Acidosis hyperchloraemic [Recovered/Resolved]
  - Norovirus infection [Recovered/Resolved]
  - Gastroenteritis norovirus [Recovered/Resolved]
  - Weight decreased [Recovered/Resolved]
  - Pancytopenia [Recovered/Resolved]
  - Depression [Recovered/Resolved]

NARRATIVE: CASE EVENT DATE: 20220101
